FAERS Safety Report 7368304-0 (Version None)
Quarter: 2011Q1

REPORT INFORMATION
  Report Type: 
  Country: None (occurrence: None)
  Receive Date: 20110311
  Receipt Date: 20110224
  Transmission Date: 20110831
  Serious: Yes (Other)
  Sender: FDA-Public Use
  Company Number: ACO_21686_2011

PATIENT
  Age: 46 Year
  Sex: Female

DRUGS (8)
  1. REBIF [Suspect]
     Indication: MULTIPLE SCLEROSIS
     Dosage: 66 ?G, WEEKLY, SUBCUTANEOUS
     Route: 058
     Dates: start: 20090903
  2. NEXIUM [Concomitant]
  3. SANCTURA [Concomitant]
  4. ASPIRIN [Concomitant]
  5. ERGOCALCIFEROL [Concomitant]
  6. PAMELOR [Concomitant]
  7. FLOMAX	/00889901/ (MORNIFLUMATE) [Concomitant]
  8. AMPYRA [Suspect]
     Indication: MULTIPLE SCLEROSIS
     Dosage: 10 MG, BID
     Dates: start: 20100501, end: 20110111

REACTIONS (4)
  - TREMOR [None]
  - URINARY INCONTINENCE [None]
  - CONVULSION [None]
  - MUSCLE SPASMS [None]
